FAERS Safety Report 14420328 (Version 1)
Quarter: 2018Q1

REPORT INFORMATION
  Report Type: Spontaneous
  Country: US (occurrence: US)
  Receive Date: 20180122
  Receipt Date: 20180122
  Transmission Date: 20180509
  Serious: Yes (Other)
  Sender: FDA-Public Use
  Company Number: US-ROCHE-1918735

PATIENT
  Age: 39 Year
  Sex: Female

DRUGS (6)
  1. METHOTREXATE. [Concomitant]
     Active Substance: METHOTREXATE
     Indication: RHEUMATOID ARTHRITIS
     Route: 065
  2. SOLU-MEDROL [Concomitant]
     Active Substance: METHYLPREDNISOLONE SODIUM SUCCINATE
     Indication: PREMEDICATION
     Route: 042
     Dates: start: 20170323, end: 20170323
  3. HCG [Concomitant]
     Active Substance: GONADOTROPHIN, CHORIONIC
     Indication: RHEUMATOID ARTHRITIS
     Route: 048
  4. BENADRYL [Concomitant]
     Active Substance: DIPHENHYDRAMINE HYDROCHLORIDE
     Indication: PREMEDICATION
     Route: 042
     Dates: start: 20170323, end: 20170323
  5. TYLENOL [Concomitant]
     Active Substance: ACETAMINOPHEN
     Indication: PREMEDICATION
     Route: 048
     Dates: start: 20170323, end: 20170323
  6. RITUXAN [Suspect]
     Active Substance: RITUXIMAB
     Indication: RHEUMATOID ARTHRITIS
     Dosage: 1000 MG DAILY ON DAYS1-15.?RECENT DOSE OF RITUXIMAB: 06/APR/2017
     Route: 042
     Dates: start: 20170321

REACTIONS (5)
  - Urticaria [Recovered/Resolved]
  - Pruritus [Unknown]
  - Cough [Recovered/Resolved]
  - Dark circles under eyes [Unknown]
  - Wheezing [Recovered/Resolved]

NARRATIVE: CASE EVENT DATE: 20170323
